FAERS Safety Report 9406512 (Version 1)
Quarter: 2013Q3

REPORT INFORMATION
  Report Type: Report from Study
  Country: US (occurrence: US)
  Receive Date: 20130718
  Receipt Date: 20130718
  Transmission Date: 20140515
  Serious: Yes (Other)
  Sender: FDA-Public Use
  Company Number: US-BRISTOL-MYERS SQUIBB COMPANY-19106335

PATIENT
  Age: 52 Year
  Sex: Male

DRUGS (8)
  1. BYDUREON [Suspect]
     Indication: TYPE 2 DIABETES MELLITUS
     Route: 058
     Dates: start: 20130506, end: 20130617
  2. METFORMIN [Concomitant]
     Indication: TYPE 2 DIABETES MELLITUS
     Dates: start: 2010
  3. GLUCOTROL [Concomitant]
     Indication: TYPE 2 DIABETES MELLITUS
     Dosage: DOSE VALUE:10MG TAB
     Route: 048
     Dates: start: 2010
  4. LEVITRA [Concomitant]
     Dosage: 1/2 TAB ORALLY
     Route: 048
  5. GLUCOPHAGE TABS [Concomitant]
     Dosage: INCREASED TO 2 TABS A DAY
     Route: 048
  6. PRINZIDE [Concomitant]
     Dosage: 1 TAB OF 20-25 WITH COMBINATION OF ZESTORETIC
     Route: 048
  7. ZESTORETIC [Concomitant]
     Dosage: 1 TAB OF 20-25 WITH COMBINATION OF PRINZIDE
     Route: 048
  8. ZOCOR [Concomitant]
     Indication: BLOOD CHOLESTEROL
     Dosage: TAB
     Route: 048

REACTIONS (1)
  - Pancreatitis [Recovered/Resolved]
